FAERS Safety Report 20673541 (Version 1)
Quarter: 2022Q2

REPORT INFORMATION
  Report Type: Spontaneous
  Country: TW (occurrence: TW)
  Receive Date: 20220405
  Receipt Date: 20220405
  Transmission Date: 20220721
  Serious: Yes (Other)
  Sender: FDA-Public Use
  Company Number: TW-AMGEN-TWNSP2022054810

PATIENT
  Age: 52 Year
  Sex: Female

DRUGS (7)
  1. XGEVA [Suspect]
     Active Substance: DENOSUMAB
     Indication: Lung adenocarcinoma stage IV
     Dosage: UNK UNK, QMO
     Route: 065
     Dates: start: 201308
  2. XGEVA [Suspect]
     Active Substance: DENOSUMAB
     Indication: Metastases to lung
  3. XGEVA [Suspect]
     Active Substance: DENOSUMAB
     Indication: Metastases to bone
  4. ALIMTA [Concomitant]
     Active Substance: PEMETREXED DISODIUM
  5. CALCIUM [Concomitant]
     Active Substance: CALCIUM
  6. MORPHINE [Concomitant]
     Active Substance: MORPHINE
     Dosage: UNK
  7. TRAMADOL [Concomitant]
     Active Substance: TRAMADOL
     Dosage: 50 MILLIGRAM, QD (PRN)

REACTIONS (2)
  - Adenocarcinoma metastatic [Unknown]
  - Lung adenocarcinoma stage IV [Unknown]

NARRATIVE: CASE EVENT DATE: 20140701
